FAERS Safety Report 9226484 (Version 1)
Quarter: 2013Q2

REPORT INFORMATION
  Report Type: Spontaneous
  Country: US (occurrence: US)
  Receive Date: 20130411
  Receipt Date: 20130411
  Transmission Date: 20140414
  Serious: No
  Sender: FDA-Public Use
  Company Number: US-009507513-1304USA005092

PATIENT
  Sex: Male

DRUGS (2)
  1. SAPHRIS [Suspect]
     Dosage: UNK
     Dates: start: 2010
  2. RISPERIDONE [Concomitant]
     Dosage: UNK

REACTIONS (2)
  - Adverse event [Unknown]
  - Adverse event [Unknown]
